FAERS Safety Report 20502900 (Version 1)
Quarter: 2022Q1

REPORT INFORMATION
  Report Type: Spontaneous
  Country: IN (occurrence: IN)
  Receive Date: 20220222
  Receipt Date: 20220222
  Transmission Date: 20220423
  Serious: Yes (Hospitalization, Other)
  Sender: FDA-Public Use
  Company Number: IN-PFIZER INC-2021082323

PATIENT
  Age: 68 Year
  Sex: Female

DRUGS (2)
  1. PALBOCICLIB [Suspect]
     Active Substance: PALBOCICLIB
     Indication: Breast cancer metastatic
     Dosage: 125 MG, ONCE A DAY FOR 21 DAYS
     Route: 048
     Dates: start: 20180525, end: 202112
  2. FULVESTRANT [Concomitant]
     Active Substance: FULVESTRANT
     Dosage: 250 MG (2 VIAL IN EACH BUTTOCK)

REACTIONS (3)
  - Cardiac disorder [Unknown]
  - Leukopenia [Unknown]
  - Haemoglobin decreased [Unknown]
